FAERS Safety Report 7628623-7 (Version None)
Quarter: 2011Q3

REPORT INFORMATION
  Report Type: 
  Country: None (occurrence: None)
  Receive Date: 20110722
  Receipt Date: 20110714
  Transmission Date: 20111222
  Serious: Yes (Hospitalization)
  Sender: FDA-Public Use
  Company Number: DZ-MUTUAL PHARMACEUTICAL COMPANY, INC.-PDNS20110004

PATIENT
  Age: 23 Year
  Sex: Male

DRUGS (2)
  1. PROPRANOLOL [Concomitant]
     Indication: HYPERTHYROIDISM
     Route: 065
     Dates: start: 20080301
  2. PREDNISONE [Suspect]
     Route: 065

REACTIONS (1)
  - INTRACRANIAL VENOUS SINUS THROMBOSIS [None]
